FAERS Safety Report 19041520 (Version 7)
Quarter: 2021Q3

REPORT INFORMATION
  Report Type: Report from Study
  Country: DK (occurrence: DK)
  Receive Date: 20210323
  Receipt Date: 20210707
  Transmission Date: 20211014
  Serious: Yes (Death, Hospitalization)
  Sender: FDA-Public Use
  Company Number: DK-ROCHE-2791869

PATIENT
  Age: 83 Year
  Sex: Male

DRUGS (24)
  1. DOXORUBICIN [Suspect]
     Active Substance: DOXORUBICIN
     Indication: DIFFUSE LARGE B-CELL LYMPHOMA
     Dosage: DAY 1, CYCLES 1?6?LAST ADMINISTRATION DATE:11/MAR/2021
     Route: 042
     Dates: start: 20210311
  2. KABIVEN [Concomitant]
     Active Substance: AMINO ACIDS\ANHYDROUS DEXTROSE\CALCIUM CHLORIDE\MAGNESIUM SULFATE HEPTAHYDRATE\POTASSIUM CHLORIDE\SODIUM ACETATE\SODIUM GLYCEROPHOSPHATE ANHYDROUS\SOYBEAN OIL
     Route: 042
     Dates: start: 20210316
  3. SOLUVIT [Concomitant]
     Active Substance: VITAMINS
     Route: 042
     Dates: start: 20210316
  4. ALLOPURINOL. [Concomitant]
     Active Substance: ALLOPURINOL
     Dosage: 1X1
     Route: 048
     Dates: start: 20210305
  5. ACETYLSALICYLIC ACID [Concomitant]
     Active Substance: ASPIRIN
     Route: 048
     Dates: start: 20181015
  6. KABIVEN [Concomitant]
     Active Substance: AMINO ACIDS\ANHYDROUS DEXTROSE\CALCIUM CHLORIDE\MAGNESIUM SULFATE HEPTAHYDRATE\POTASSIUM CHLORIDE\SODIUM ACETATE\SODIUM GLYCEROPHOSPHATE ANHYDROUS\SOYBEAN OIL
     Dates: start: 20210317
  7. CIPROFLOXACIN. [Concomitant]
     Active Substance: CIPROFLOXACIN
     Indication: URINARY TRACT INFECTION
     Route: 048
     Dates: start: 20210318
  8. HALOPERIDOL. [Concomitant]
     Active Substance: HALOPERIDOL
     Dosage: MAX. 1ML/DAY
     Route: 058
     Dates: start: 20210401, end: 20210403
  9. GLYCOPYRRONIUM [Concomitant]
     Active Substance: GLYCOPYRRONIUM
     Dosage: MAX 0.8 MG/DAY
     Route: 058
     Dates: start: 20210401, end: 20210403
  10. RITUXIMAB. [Suspect]
     Active Substance: RITUXIMAB
     Indication: DIFFUSE LARGE B-CELL LYMPHOMA
     Dosage: DAY 1, CYCLE 1. 1400 MG S C OR 375 MG/M2 IV CYCLES 2?6?LAST ADMINISTRATION DATE:11/MAR/2021
     Route: 042
     Dates: start: 20210311
  11. CYCLOPHOSPHAMIDE. [Suspect]
     Active Substance: CYCLOPHOSPHAMIDE
     Indication: DIFFUSE LARGE B-CELL LYMPHOMA
     Dosage: DAY 1, CYCLES 1?6?LAST ADMINISTRATION DATE:11/MAR/2021
     Route: 042
     Dates: start: 20210311
  12. BICALUTAMIDE. [Concomitant]
     Active Substance: BICALUTAMIDE
     Indication: PROSTATE CANCER
     Dosage: 1X1
     Route: 048
     Dates: start: 20180602
  13. MIDAZOLAM. [Concomitant]
     Active Substance: MIDAZOLAM
     Dosage: 0.1?0.25 MG AS NEEDED
     Route: 058
     Dates: start: 20210401, end: 20210403
  14. POLATUZUMAB VEDOTIN. [Suspect]
     Active Substance: POLATUZUMAB VEDOTIN
     Indication: DIFFUSE LARGE B-CELL LYMPHOMA
     Dosage: DAY 1 CYCLES 1?6?LAST ADMINISTRATION DATE:11/MAR/2021
     Route: 042
     Dates: start: 20210311
  15. GLUCOSE [Concomitant]
     Active Substance: DEXTROSE
     Dosage: 50 MG/ML?REHYDRATION
     Dates: start: 20210315, end: 20210315
  16. FUROSIMIDE [Concomitant]
     Active Substance: FUROSEMIDE
     Route: 048
     Dates: start: 20210322
  17. SOLUVIT [Concomitant]
     Active Substance: VITAMINS
     Route: 042
     Dates: start: 20210317
  18. FILGRASTIM [Concomitant]
     Active Substance: FILGRASTIM
     Indication: PROPHYLAXIS
     Dosage: 30 ME 1X1 SC
     Route: 058
     Dates: start: 20210314, end: 20210321
  19. ATORVASTATIN [Concomitant]
     Active Substance: ATORVASTATIN
     Dosage: 1X1
     Route: 048
     Dates: start: 20210218
  20. ESOMEPRAZOLE. [Concomitant]
     Active Substance: ESOMEPRAZOLE MAGNESIUM
     Dosage: 1X1
     Route: 048
     Dates: start: 20210213
  21. MORPHINE [Concomitant]
     Active Substance: MORPHINE
     Dosage: 2.5?5 MG MAX. 30 MG/DAY
     Route: 058
     Dates: start: 20210401, end: 20210403
  22. PREDNISONE. [Suspect]
     Active Substance: PREDNISONE
     Indication: DIFFUSE LARGE B-CELL LYMPHOMA
     Dosage: DAYS 1?5, CYCLES 1?6 ? ROUND UP TO NEAREST 25 MG?LAST DOSE OF PREDNISONE PRIOR TO EVENT ONSET 15/MAR
     Route: 048
     Dates: start: 20210304
  23. RASBURICASE [Concomitant]
     Active Substance: RASBURICASE
     Dates: start: 20210311
  24. FUROSIMIDE [Concomitant]
     Active Substance: FUROSEMIDE
     Indication: FLUID RETENTION
     Route: 048
     Dates: start: 20210313, end: 20210319

REACTIONS (4)
  - Hypoxia [Fatal]
  - Hypoalbuminaemia [Fatal]
  - Anaemia [Recovered/Resolved with Sequelae]
  - Acute kidney injury [Recovered/Resolved]

NARRATIVE: CASE EVENT DATE: 20210315
